FAERS Safety Report 5137953-2 (Version None)
Quarter: 2006Q4

REPORT INFORMATION
  Report Type: 
  Country: None (occurrence: None)
  Receive Date: 20061030
  Receipt Date: 20060322
  Transmission Date: 20070319
  Serious: No
  Sender: FDA-Public Use
  Company Number: US-GLAXOSMITHKLINE-A0598606A

PATIENT
  Age: 90 Year
  Sex: Female

DRUGS (13)
  1. ADVAIR HFA [Suspect]
     Indication: ASTHMA
     Route: 055
  2. LEXAPRO [Concomitant]
  3. VERAPAMIL [Concomitant]
  4. ENALAPRIL MALEATE [Concomitant]
  5. EVISTA [Concomitant]
  6. NIFEREX [Concomitant]
  7. NEXIUM [Concomitant]
  8. FORTICAL [Concomitant]
  9. DYAZIDE [Concomitant]
  10. COMBIVENT [Concomitant]
  11. ZOCOR [Concomitant]
  12. CLONAZEPAM [Concomitant]
  13. XALATAN [Concomitant]

REACTIONS (2)
  - GLOSSODYNIA [None]
  - PHARMACEUTICAL PRODUCT COMPLAINT [None]
